FAERS Safety Report 7577259-5 (Version None)
Quarter: 2011Q2

REPORT INFORMATION
  Report Type: 
  Country: None (occurrence: None)
  Receive Date: 20110628
  Receipt Date: 20110307
  Transmission Date: 20111010
  Serious: Yes (Other)
  Sender: FDA-Public Use
  Company Number: US-BAYER-201031170NA

PATIENT
  Age: 39 Year
  Sex: Female
  Weight: 83.9 kg

DRUGS (4)
  1. YASMIN [Suspect]
     Indication: CONTRACEPTION
     Dosage: UNK
     Dates: start: 20071030, end: 20080613
  2. PREDNISONE [Concomitant]
     Indication: DERMATITIS CONTACT
  3. DROSPIRENONE AND ETHINYL ESTRADIOL [Suspect]
     Indication: CONTRACEPTION
     Dosage: UNK
     Dates: start: 20080701, end: 20090707
  4. NSAID'S [Concomitant]
     Indication: PRODUCT USED FOR UNKNOWN INDICATION

REACTIONS (8)
  - LUNG INFILTRATION [None]
  - PULMONARY EMBOLISM [None]
  - DYSPNOEA [None]
  - CHEST PAIN [None]
  - FATIGUE [None]
  - BACK PAIN [None]
  - PAIN IN EXTREMITY [None]
  - COUGH [None]
